FAERS Safety Report 4652119-8 (Version None)
Quarter: 2005Q2

REPORT INFORMATION
  Report Type: 
  Country: None (occurrence: None)
  Receive Date: 20050408
  Receipt Date: 20051215
  Transmission Date: 20051028
  Serious: No
  Sender: FDA-Public Use
  Company Number: 233971K04USA

PATIENT
  Age: 45 Year
  Sex: Female

DRUGS (2)
  1. REBIF [Suspect]
     Indication: MULTIPLE SCLEROSIS
     Dates: start: 20040811
  2. BUPROPION HYDROCHLORIDE [Concomitant]

REACTIONS (15)
  - ASTHENIA [None]
  - CHILLS [None]
  - DECREASED ACTIVITY [None]
  - DEPRESSION [None]
  - HYPERHIDROSIS [None]
  - INFLUENZA LIKE ILLNESS [None]
  - INJECTION SITE ERYTHEMA [None]
  - INJECTION SITE NODULE [None]
  - INJECTION SITE REACTION [None]
  - INJECTION SITE SWELLING [None]
  - INJECTION SITE WARMTH [None]
  - LETHARGY [None]
  - MUSCULOSKELETAL PAIN [None]
  - SWELLING FACE [None]
  - URTICARIA [None]
